FAERS Safety Report 23651651 (Version 1)
Quarter: 2024Q1

REPORT INFORMATION
  Report Type: Report from Study
  Country: US (occurrence: US)
  Receive Date: 20240320
  Receipt Date: 20240320
  Transmission Date: 20240410
  Serious: Yes (Hospitalization, Other)
  Sender: FDA-Public Use
  Company Number: US-ABBVIE-5679976

PATIENT
  Age: 64 Year
  Sex: Female

DRUGS (15)
  1. VENCLEXTA [Suspect]
     Active Substance: VENETOCLAX
     Indication: Chronic lymphocytic leukaemia
     Dosage: FREQUENCY TEXT: CYCLE 1: 20 MG PO ONCE PER DAY ON DAYS
     Route: 048
  2. VENCLEXTA [Suspect]
     Active Substance: VENETOCLAX
     Indication: Chronic lymphocytic leukaemia
     Dosage: FREQUENCY TEXT: 200 MG PO ONCE PER DAY ON DAYS 15 TO 21
     Route: 048
  3. VENCLEXTA [Suspect]
     Active Substance: VENETOCLAX
     Indication: Chronic lymphocytic leukaemia
     Dosage: 400 MG PO ONCE PER DAY ON DAYS 22 TO 28
     Route: 048
  4. VENCLEXTA [Suspect]
     Active Substance: VENETOCLAX
     Indication: Chronic lymphocytic leukaemia
     Dosage: FREQUENCY TEXT: CYCLE 2 : 50 MG PO ONCE PER DAY ON DAYS
     Route: 048
  5. VENCLEXTA [Suspect]
     Active Substance: VENETOCLAX
     Indication: Chronic lymphocytic leukaemia
     Dosage: FORM STRENGTH: 100 MG, FREQUENCY TEXT: 100 MG PO ONCE PER DAY ON DAYS 8 TO 14
     Route: 048
  6. VENCLEXTA [Suspect]
     Active Substance: VENETOCLAX
     Indication: Chronic lymphocytic leukaemia
     Dosage: FREQUENCY TEXT: CYCLES 3 TO 12: 400 MG PO ONCE PER DAY
     Route: 048
  7. ZINC CITRATE [Concomitant]
     Active Substance: ZINC CITRATE
     Indication: Product used for unknown indication
     Route: 048
  8. GAZYVA [Suspect]
     Active Substance: OBINUTUZUMAB
     Indication: Product used for unknown indication
     Dosage: FREQUENCY TEXT: CYCLE 1: 100 MG IV ONCE ON DAY 1
     Route: 042
     Dates: start: 20230518
  9. GAZYVA [Suspect]
     Active Substance: OBINUTUZUMAB
     Indication: Product used for unknown indication
     Dosage: FREQUENCY TEXT: CYCLES 2 TO 6: 1000 MG IV ONCE ON DAY
     Route: 042
  10. GAZYVA [Suspect]
     Active Substance: OBINUTUZUMAB
     Indication: Product used for unknown indication
     Dosage: FREQUENCY TEXT: THEN 900 MG IV ONCE ON DAY 2
     Route: 042
  11. GAZYVA [Suspect]
     Active Substance: OBINUTUZUMAB
     Indication: Product used for unknown indication
     Dosage: FREQUENCY TEXT: 1000 MG IV ONCE PER DAY ON DAYS 8 AND 15
     Route: 042
  12. LASIX [Concomitant]
     Active Substance: FUROSEMIDE
     Indication: Product used for unknown indication
     Route: 048
  13. LYSINE [Concomitant]
     Active Substance: LYSINE
     Indication: Product used for unknown indication
     Route: 048
  14. VITAMIN D3 [Concomitant]
     Active Substance: CHOLECALCIFEROL
     Indication: Product used for unknown indication
     Route: 048
  15. VITAMIN C [Concomitant]
     Active Substance: ASCORBIC ACID
     Indication: Product used for unknown indication
     Route: 048

REACTIONS (25)
  - Septic shock [Unknown]
  - Essential hypertension [Unknown]
  - Tumour lysis syndrome [Recovered/Resolved]
  - Splenomegaly [Unknown]
  - Hypothyroidism [Unknown]
  - Vitamin D deficiency [Unknown]
  - Chills [Unknown]
  - Neutropenia [Unknown]
  - Hypotension [Unknown]
  - Obesity [Unknown]
  - Pyrexia [Unknown]
  - Hypogammaglobulinaemia [Unknown]
  - Postmenopause [Unknown]
  - Blood glucose abnormal [Unknown]
  - Vomiting [Unknown]
  - Thrombocytopenia [Unknown]
  - Ingrowing nail [Unknown]
  - Fatigue [Unknown]
  - Abdominal discomfort [Unknown]
  - Platelet count abnormal [Unknown]
  - Abdominal lymphadenopathy [Unknown]
  - Onychomycosis [Unknown]
  - Paronychia [Unknown]
  - Leukocytosis [Unknown]
  - Angiopathy [Unknown]

NARRATIVE: CASE EVENT DATE: 20230524
